FAERS Safety Report 8360652-0 (Version None)
Quarter: 2012Q2

REPORT INFORMATION
  Report Type: 
  Country: None (occurrence: None)
  Receive Date: 20120514
  Receipt Date: 20120514
  Transmission Date: 20120825
  Serious: Yes (Hospitalization)
  Sender: FDA-Public Use
  Company Number: None

PATIENT
  Age: 65 Year
  Sex: Male
  Weight: 123 kg

DRUGS (8)
  1. VARDNEIFIL [Concomitant]
  2. ESOMEPRAZOLE MAGNESIUM [Concomitant]
  3. MIRALAX [Concomitant]
  4. FERRIPROX [Suspect]
     Indication: HAEMOSIDEROSIS
     Dosage: 1GM BID PO
     Route: 048
     Dates: start: 20120206, end: 20120507
  5. MELOXICAM [Concomitant]
  6. GABAPENTIN [Concomitant]
  7. TELMISARTAN [Concomitant]
  8. SIMVASTATIN [Concomitant]

REACTIONS (1)
  - AGRANULOCYTOSIS [None]
